FAERS Safety Report 4783476-X (Version None)
Quarter: 2005Q3

REPORT INFORMATION
  Report Type: 
  Country: None (occurrence: None)
  Receive Date: 20050914
  Receipt Date: 20050223
  Transmission Date: 20060218
  Serious: Yes (Other)
  Sender: FDA-Public Use
  Company Number: 163-20785-04050619

PATIENT
  Age: 75 Year
  Sex: Female

DRUGS (8)
  1. THALOMID [Suspect]
     Indication: MULTIPLE MYELOMA
     Dosage: 50 MG, AT BEDTIME, ORAL
     Route: 048
     Dates: start: 20040226, end: 20040427
  2. DEXAMETHASONE [Concomitant]
  3. MS CONTIN [Concomitant]
  4. ZOLOFT [Concomitant]
  5. FOLIC ACID [Concomitant]
  6. AREDIA [Concomitant]
  7. MOM (MAGNESIUM HYDROXIDE) [Concomitant]
  8. PERCOCET [Concomitant]

REACTIONS (1)
  - DEEP VEIN THROMBOSIS [None]
